FAERS Safety Report 7946746-X (Version None)
Quarter: 2011Q4

REPORT INFORMATION
  Report Type: 
  Country: None (occurrence: None)
  Receive Date: 20111129
  Receipt Date: 20111121
  Transmission Date: 20120403
  Serious: Yes (Other)
  Sender: FDA-Public Use
  Company Number: PHHY2011ES102187

PATIENT
  Age: 54 Year
  Sex: Male

DRUGS (1)
  1. COTRIM [Suspect]
     Indication: WHIPPLE'S DISEASE
     Route: 048

REACTIONS (3)
  - HEPATITIS TOXIC [None]
  - MULTI-ORGAN FAILURE [None]
  - RENAL FAILURE ACUTE [None]
